FAERS Safety Report 7876608-8 (Version None)
Quarter: 2011Q4

REPORT INFORMATION
  Report Type: 
  Country: None (occurrence: None)
  Receive Date: 20111031
  Receipt Date: 20110728
  Transmission Date: 20120403
  Serious: Yes (Death, Hospitalization, Other)
  Sender: FDA-Public Use
  Company Number: US-BAYER-201011971NA

PATIENT
  Age: 87 Year
  Sex: Female
  Weight: 97.506 kg

DRUGS (30)
  1. TRASYLOL [Suspect]
     Indication: CORONARY ARTERY BYPASS
     Dosage: 200 ML, LOADING DOSE
     Route: 042
     Dates: start: 20030310, end: 20030310
  2. ALLOPRIN [Concomitant]
     Dosage: 100 MG, UNK
     Route: 048
     Dates: start: 20030306
  3. INDERAL [Concomitant]
     Dosage: 40 MG, UNK
     Route: 048
     Dates: start: 20030306, end: 20030306
  4. VERSED [Concomitant]
     Dosage: 8 MG, UNK
     Route: 042
     Dates: start: 20030310, end: 20030311
  5. AMLODIPINE [Concomitant]
     Dosage: 5 MG, UNK
     Route: 048
     Dates: start: 20030128
  6. LISINOPRIL [Concomitant]
     Dosage: 20 MG, UNK
     Route: 048
     Dates: start: 20030308
  7. LEVOTHYROXINE SODIUM [Concomitant]
     Dosage: 0.05 MG, UNK
     Route: 048
     Dates: start: 20030306
  8. METFORMIN HCL [Concomitant]
     Dosage: 500 MG, UNK
     Route: 048
     Dates: start: 20030128
  9. GLUCOPHAGE [Concomitant]
     Route: 048
  10. HEPARIN [Concomitant]
     Dosage: UNK
     Route: 042
     Dates: start: 20030310, end: 20030311
  11. DOPAMINE HCL [Concomitant]
     Dosage: 5MCG/MIN
     Route: 042
     Dates: start: 20030310
  12. FRESH FROZEN PLASMA [Concomitant]
     Dosage: 4 U, UNK
     Dates: start: 20030310
  13. SUFENTA PRESERVATIVE FREE [Concomitant]
     Dosage: UNK
     Dates: start: 20030310
  14. PRILOSEC [Concomitant]
     Dosage: UNK
     Route: 048
     Dates: start: 20030306
  15. METHYLDOPA [Concomitant]
     Dosage: 250 MG, UNK
     Route: 048
     Dates: start: 20030306
  16. CLONIDINE [Concomitant]
     Dosage: 0.2 MG, UNK
     Route: 048
     Dates: start: 20030306
  17. EPINEPHRINE [Concomitant]
     Dosage: 1MCG/MIN
     Route: 042
     Dates: start: 20030310
  18. PRIMACOR [Concomitant]
     Dosage: 5 MCG/MIN
     Route: 042
     Dates: start: 20030310
  19. NIMBEX [Concomitant]
     Dosage: UNK
     Dates: start: 20030310
  20. HYDROCHLOROTHIAZIDE [Concomitant]
     Dosage: UNK
     Route: 048
     Dates: start: 20030306
  21. ETOMIDATE [Concomitant]
     Dosage: 10 CC
     Route: 042
     Dates: start: 20030310, end: 20030311
  22. SOLU-MEDROL [Concomitant]
     Dosage: 1.5 G, UNK
     Route: 042
     Dates: start: 20030310, end: 20030311
  23. TRASYLOL [Suspect]
     Indication: AORTIC VALVE REPLACEMENT
     Dosage: 50 ML, Q1HR
     Route: 042
     Dates: start: 20030310, end: 20030310
  24. CONJUGATED ESTROGEN [Concomitant]
     Dosage: 1.25 MG, UNK
     Route: 048
  25. PHENAZOPYRIDINE HCL TAB [Concomitant]
     Dosage: 200 MG, UNK
     Route: 048
     Dates: start: 20030303
  26. PLATELETS [Concomitant]
     Dosage: UNK
     Dates: start: 20030310
  27. DOXEPIN [Concomitant]
     Dosage: 25 MG, UNK
     Route: 048
     Dates: start: 20030127
  28. ALDORIL 15 [Concomitant]
     Dosage: 250/25 MG
     Route: 048
     Dates: start: 20030306
  29. CEFUROXIME [Concomitant]
     Dosage: 1.5 GM
     Route: 042
     Dates: start: 20030310, end: 20030311
  30. INSULIN [Concomitant]
     Dosage: 14 U, UNK
     Route: 042
     Dates: start: 20030310, end: 20030311

REACTIONS (12)
  - RENAL IMPAIRMENT [None]
  - INJURY [None]
  - RENAL FAILURE [None]
  - RENAL INJURY [None]
  - EMOTIONAL DISTRESS [None]
  - STRESS [None]
  - ANXIETY [None]
  - FEAR [None]
  - MULTI-ORGAN FAILURE [None]
  - DEATH [None]
  - PAIN [None]
  - UNEVALUABLE EVENT [None]
